FAERS Safety Report 25878257 (Version 1)
Quarter: 2025Q4

REPORT INFORMATION
  Report Type: Spontaneous
  Country: ID (occurrence: ID)
  Receive Date: 20251003
  Receipt Date: 20251003
  Transmission Date: 20260118
  Serious: Yes (Other)
  Sender: RANBAXY
  Company Number: ID-SUN PHARMACEUTICAL INDUSTRIES LTD-2025R1-529860

PATIENT
  Age: 48 Year
  Sex: Female

DRUGS (1)
  1. LIDOCAINE [Suspect]
     Active Substance: LIDOCAINE
     Indication: Supraventricular tachycardia
     Dosage: UNK
     Route: 042

REACTIONS (2)
  - Dizziness [Recovering/Resolving]
  - Presyncope [Recovering/Resolving]
